FAERS Safety Report 6255131-0 (Version None)
Quarter: 2009Q3

REPORT INFORMATION
  Report Type: 
  Country: None (occurrence: None)
  Receive Date: 20090702
  Receipt Date: 20090622
  Transmission Date: 20100115
  Serious: Yes (Hospitalization, Other)
  Sender: FDA-Public Use
  Company Number: PHHY2009JP25242

PATIENT
  Sex: Male
  Weight: 65 kg

DRUGS (19)
  1. DIOVAN T30230+TAB+HY [Suspect]
     Dosage: 120 MG, QD
     Route: 048
     Dates: start: 20071005
  2. BLOPRESS [Concomitant]
     Indication: HYPERTENSION
     Dosage: 12 MG, UNK
     Route: 048
     Dates: start: 20070322, end: 20071004
  3. ATELEC [Concomitant]
     Indication: HYPERTENSION
     Dosage: 20 MG, UNK
     Route: 048
     Dates: start: 20070125
  4. FLUITRAN [Concomitant]
     Indication: HYPERTENSION
     Dosage: 1 MG, UNK
     Route: 048
     Dates: start: 20080328
  5. FLUITRAN [Concomitant]
     Dosage: 2 MG, UNK
     Route: 048
  6. PREDNISOLONE [Concomitant]
     Dosage: 7 MG, UNK
     Route: 048
     Dates: start: 20070222
  7. PREDNISOLONE [Concomitant]
     Dosage: 6 MG, UNK
     Route: 048
  8. VOLTAREN-XR [Concomitant]
     Dosage: 75 MG, UNK
     Route: 048
     Dates: start: 20070222
  9. TAKEPRON [Concomitant]
     Dosage: 15 MG, UNK
     Route: 048
     Dates: start: 20070222
  10. ONEALFA [Concomitant]
     Dosage: 1.0 UG, UNK
     Route: 048
     Dates: start: 20040621
  11. BREDININ [Concomitant]
     Dosage: 150 MG, UNK
     Route: 048
     Dates: start: 20041004, end: 20080819
  12. BENET [Concomitant]
     Dosage: 2.5 MG, UNK
     Route: 048
     Dates: start: 20050207
  13. WARFARIN [Concomitant]
     Dosage: 3 MG, UNK
     Route: 048
     Dates: start: 20081005
  14. WARFARIN [Concomitant]
     Dosage: 3.5 MG, UNK
     Route: 048
  15. WARFARIN [Concomitant]
     Dosage: 3 MG, UNK
     Route: 048
     Dates: end: 20081023
  16. NOVORAPID [Concomitant]
     Dosage: 16 IU, UNK
     Route: 058
     Dates: start: 20070501
  17. NOVORAPID [Concomitant]
     Dosage: 16 IU, UNK
     Route: 058
  18. PROGRAF [Concomitant]
     Dosage: 1 MG, UNK
     Route: 048
     Dates: start: 20080820
  19. PROGRAF [Concomitant]
     Dosage: 2 MG, UNK
     Route: 048

REACTIONS (4)
  - BLOOD UREA INCREASED [None]
  - BLOOD URIC ACID INCREASED [None]
  - RHEUMATOID ARTHRITIS [None]
  - RHINITIS [None]
